FAERS Safety Report 22273713 (Version 1)
Quarter: 2023Q2

REPORT INFORMATION
  Report Type: Other
  Country: US (occurrence: None)
  Receive Date: 20230502
  Receipt Date: 20230502
  Transmission Date: 20230721
  Serious: No
  Sender: FDA-Public Use
  Company Number: US-ROCHE-3340949

PATIENT
  Age: 59 Year
  Sex: Female
  Weight: 59.020 kg

DRUGS (4)
  1. OCREVUS [Suspect]
     Active Substance: OCRELIZUMAB
     Indication: Progressive multiple sclerosis
     Dosage: DATE OF TREATMENT: 17/APR/2023, 17/OCT/2022
     Route: 042
     Dates: start: 2019
  2. REBIF [Concomitant]
     Active Substance: INTERFERON BETA-1A
  3. TYSABRI [Concomitant]
     Active Substance: NATALIZUMAB
  4. AUBAGIO [Concomitant]
     Active Substance: TERIFLUNOMIDE

REACTIONS (4)
  - Headache [Recovered/Resolved]
  - Swelling [Recovered/Resolved]
  - Staphylococcal infection [Not Recovered/Not Resolved]
  - Back pain [Unknown]

NARRATIVE: CASE EVENT DATE: 20230417
